FAERS Safety Report 5631278-4 (Version None)
Quarter: 2008Q1

REPORT INFORMATION
  Report Type: 
  Country: None (occurrence: None)
  Receive Date: 20080131
  Receipt Date: 20071022
  Transmission Date: 20080703
  Serious: No
  Sender: FDA-Public Use
  Company Number: 163-21880-07101343(0)

PATIENT
  Age: 74 Year
  Sex: Female

DRUGS (2)
  1. REVLIMID [Suspect]
     Indication: MULTIPLE MYELOMA
     Dosage: 10 MG, DAILY 21/28, ORAL : 15 MG, DAILY 21/28, ORAL
     Route: 048
     Dates: start: 20070803, end: 20071001
  2. REVLIMID [Suspect]
     Indication: MULTIPLE MYELOMA
     Dosage: 10 MG, DAILY 21/28, ORAL : 15 MG, DAILY 21/28, ORAL
     Route: 048
     Dates: start: 20071022

REACTIONS (1)
  - DIZZINESS [None]
